APPROVED DRUG PRODUCT: DEXTROAMP SACCHARATE, AMP ASPARTATE, DEXTROAMP SULFATE AND AMP SULFATE
Active Ingredient: AMPHETAMINE ASPARTATE; AMPHETAMINE SULFATE; DEXTROAMPHETAMINE SACCHARATE; DEXTROAMPHETAMINE SULFATE
Strength: 3.75MG;3.75MG;3.75MG;3.75MG
Dosage Form/Route: CAPSULE, EXTENDED RELEASE;ORAL
Application: A211876 | Product #003
Applicant: AUROLIFE PHARMA LLC
Approved: Jun 24, 2020 | RLD: No | RS: No | Type: DISCN